FAERS Safety Report 4662136-X (Version None)
Quarter: 2005Q2

REPORT INFORMATION
  Report Type: 
  Country: None (occurrence: None)
  Receive Date: 20050512
  Receipt Date: 20050428
  Transmission Date: 20051028
  Serious: Yes (Disabling, Other)
  Sender: FDA-Public Use
  Company Number: 200504IM000158

PATIENT

DRUGS (1)
  1. INFERGEN [Suspect]

REACTIONS (3)
  - CARNITINE DEFICIENCY [None]
  - DIFFICULTY IN WALKING [None]
  - HEPATIC CIRRHOSIS [None]
